FAERS Safety Report 16652730 (Version 1)
Quarter: 2019Q3

REPORT INFORMATION
  Report Type: Spontaneous
  Country: US (occurrence: US)
  Receive Date: 20190731
  Receipt Date: 20190731
  Transmission Date: 20191004
  Serious: Yes (Other)
  Sender: FDA-Public Use
  Company Number: None

PATIENT
  Age: 55 Year
  Sex: Female
  Weight: 90.45 kg

DRUGS (17)
  1. CETIRIZINE [Concomitant]
     Active Substance: CETIRIZINE HYDROCHLORIDE
  2. CARAFATE [Concomitant]
     Active Substance: SUCRALFATE
  3. SYNTHROID [Concomitant]
     Active Substance: LEVOTHYROXINE SODIUM
  4. TYLENOL [Concomitant]
     Active Substance: ACETAMINOPHEN
  5. TRAMADOL. [Concomitant]
     Active Substance: TRAMADOL
  6. VITAMIN D3 COMPLETE [Concomitant]
  7. TRAZODONE [Concomitant]
     Active Substance: TRAZODONE HYDROCHLORIDE
  8. CYCLOBENZAPRINE. [Concomitant]
     Active Substance: CYCLOBENZAPRINE
  9. LOSARTAN. [Concomitant]
     Active Substance: LOSARTAN
  10. SINGULAIR [Concomitant]
     Active Substance: MONTELUKAST SODIUM
  11. DICLOFENAC [Concomitant]
     Active Substance: DICLOFENAC
  12. VIT D [Concomitant]
     Active Substance: VITAMIN D NOS
  13. LETROZOLE. [Suspect]
     Active Substance: LETROZOLE
     Indication: BREAST CANCER FEMALE
     Route: 048
     Dates: start: 20190111, end: 20190731
  14. FUROSEMIDE. [Concomitant]
     Active Substance: FUROSEMIDE
  15. VITAMIN C [Concomitant]
     Active Substance: ASCORBIC ACID
  16. GABAPENTIN. [Concomitant]
     Active Substance: GABAPENTIN
  17. NEXIUM [Concomitant]
     Active Substance: ESOMEPRAZOLE MAGNESIUM

REACTIONS (1)
  - Disease progression [None]

NARRATIVE: CASE EVENT DATE: 20190731
